FAERS Safety Report 6023601-6 (Version None)
Quarter: 2008Q4

REPORT INFORMATION
  Report Type: 
  Country: None (occurrence: None)
  Receive Date: 20081222
  Receipt Date: 20081010
  Transmission Date: 20090506
  Serious: No
  Sender: FDA-Public Use
  Company Number: SPV1-2008-02099

PATIENT
  Age: 8 Year
  Sex: Male
  Weight: 31.7 kg

DRUGS (1)
  1. VYVANSE [Suspect]
     Indication: ATTENTION DEFICIT/HYPERACTIVITY DISORDER
     Dosage: 30 MG, 1X/DAY:QD, ORAL
     Route: 048
     Dates: start: 20081001, end: 20081002

REACTIONS (8)
  - ABNORMAL BEHAVIOUR [None]
  - CHEST PAIN [None]
  - DELUSION [None]
  - HALLUCINATION, AUDITORY [None]
  - HEARING IMPAIRED [None]
  - HYPERAESTHESIA [None]
  - MANIA [None]
  - TIC [None]
